FAERS Safety Report 9341263 (Version 5)
Quarter: 2014Q2

REPORT INFORMATION
  Report Type: Spontaneous
  Country: JP (occurrence: JP)
  Receive Date: 20130611
  Receipt Date: 20140603
  Transmission Date: 20141212
  Serious: Yes (Hospitalization, Other)
  Sender: FDA-Public Use
  Company Number: JP-ROCHE-1235354

PATIENT
  Age: 23 Year
  Sex: Female
  Weight: 60 kg

DRUGS (11)
  1. XOLAIR [Suspect]
     Indication: ASTHMA
     Route: 058
     Dates: start: 20120713
  2. XOLAIR [Suspect]
     Route: 058
     Dates: start: 20121102
  3. XOLAIR [Suspect]
     Route: 058
     Dates: start: 20130528, end: 20130528
  4. SYMBICORT [Concomitant]
     Route: 065
     Dates: start: 201108
  5. ALVESCO [Concomitant]
     Route: 065
     Dates: start: 20120625
  6. BENFOTIAMINE [Concomitant]
  7. PREDNISOLONE [Concomitant]
     Route: 065
     Dates: start: 20120523
  8. THEODRIP [Concomitant]
     Route: 065
     Dates: start: 20120615
  9. SOLU-MEDROL [Concomitant]
     Route: 065
     Dates: start: 20120615, end: 20130217
  10. SINGULAIR [Concomitant]
     Route: 065
     Dates: start: 201010
  11. MEPTIN [Concomitant]
     Route: 065
     Dates: start: 201010

REACTIONS (1)
  - Anaphylactic reaction [Recovered/Resolved]
